FAERS Safety Report 5024238-8 (Version None)
Quarter: 2006Q2

REPORT INFORMATION
  Report Type: 
  Country: None (occurrence: None)
  Receive Date: 20060613
  Receipt Date: 20060612
  Transmission Date: 20061013
  Serious: Yes (Other)
  Sender: FDA-Public Use
  Company Number: PHNU2006DE02244

PATIENT
  Sex: Female

DRUGS (1)
  1. DESFERAL [Suspect]
     Indication: HAEMOSIDEROSIS
     Dosage: UNK, UNK
     Route: 065
     Dates: start: 19760101

REACTIONS (3)
  - DRUG EXPOSURE DURING PREGNANCY [None]
  - PARESIS [None]
  - PREGNANCY [None]
